FAERS Safety Report 5409515-0 (Version None)
Quarter: 2007Q3

REPORT INFORMATION
  Report Type: 
  Country: None (occurrence: None)
  Receive Date: 20070808
  Receipt Date: 20070808
  Transmission Date: 20080115
  Serious: Yes (Disabling, Other)
  Sender: FDA-Public Use
  Company Number: None

PATIENT
  Sex: Female
  Weight: 70.3075 kg

DRUGS (1)
  1. TOPAMAX [Suspect]
     Indication: AFFECTIVE DISORDER
     Dosage: 200 MG DAILY PO
     Route: 048
     Dates: start: 20000101, end: 20070807

REACTIONS (3)
  - BLOOD PH INCREASED [None]
  - ECONOMIC PROBLEM [None]
  - NEPHROLITHIASIS [None]
